FAERS Safety Report 10264701 (Version 1)
Quarter: 2014Q2

REPORT INFORMATION
  Report Type: Spontaneous
  Country: JP (occurrence: JP)
  Receive Date: 20140627
  Receipt Date: 20140627
  Transmission Date: 20141212
  Serious: Yes (Other)
  Sender: FDA-Public Use
  Company Number: JP-ASTELLAS-2014JP011997

PATIENT
  Age: 10 Year
  Sex: Male

DRUGS (1)
  1. GRACEPTOR [Suspect]
     Indication: LIVER TRANSPLANT
     Route: 048

REACTIONS (2)
  - Autoimmune hepatitis [Recovering/Resolving]
  - Drug ineffective [Unknown]
